FAERS Safety Report 5287564-3 (Version None)
Quarter: 2007Q1

REPORT INFORMATION
  Report Type: 
  Country: None (occurrence: None)
  Receive Date: 20070126
  Receipt Date: 20061018
  Transmission Date: 20070707
  Serious: No
  Sender: FDA-Public Use
  Company Number: 2006CT000828

PATIENT
  Age: 40 Year
  Sex: Female
  Weight: 106.5953 kg

DRUGS (9)
  1. VENTAVIS [Suspect]
     Indication: PULMONARY HYPERTENSION
     Dosage: 5 UG;5XD;INH
     Route: 055
     Dates: start: 20060707
  2. LOTENSIN [Concomitant]
  3. FUROSEMIDE [Concomitant]
  4. WARFARIN SODIUM [Concomitant]
  5. SPIRONOLACTONE [Concomitant]
  6. METHOTREXATE [Concomitant]
  7. EVENING PRIMROSE OIL [Concomitant]
  8. ST. JOHN'S WORT [Concomitant]
  9. SILDENAFIL CITRATE [Concomitant]

REACTIONS (2)
  - HEADACHE [None]
  - PHARYNGOLARYNGEAL PAIN [None]
